FAERS Safety Report 5883383-5 (Version None)
Quarter: 2008Q3

REPORT INFORMATION
  Report Type: 
  Country: None (occurrence: None)
  Receive Date: 20080910
  Receipt Date: 20080828
  Transmission Date: 20090109
  Serious: Yes (Other)
  Sender: FDA-Public Use
  Company Number: DSU-2008-01371

PATIENT
  Age: 63 Year
  Sex: Female

DRUGS (1)
  1. OLMESARTAN MEDOXOMIL [Suspect]
     Indication: HYPERTENSION
     Dosage: (20 MG) , PER ORAL
     Route: 048
     Dates: start: 20080815, end: 20080818

REACTIONS (2)
  - DYSPNOEA [None]
  - HYPERSENSITIVITY [None]
